FAERS Safety Report 5487244-5 (Version None)
Quarter: 2007Q3

REPORT INFORMATION
  Report Type: 
  Country: None (occurrence: None)
  Receive Date: 20070925
  Receipt Date: 20070723
  Transmission Date: 20080115
  Serious: No
  Sender: FDA-Public Use
  Company Number: 2007US001711

PATIENT
  Sex: Male

DRUGS (2)
  1. VESICARE [Suspect]
     Indication: POLLAKIURIA
     Dosage: 5 MG; 10 MG, ORAL
     Route: 048
     Dates: start: 20070501, end: 20070701
  2. VESICARE [Suspect]
     Indication: POLLAKIURIA
     Dosage: 5 MG; 10 MG, ORAL
     Route: 048
     Dates: start: 20070701

REACTIONS (1)
  - CONFUSIONAL STATE [None]
